FAERS Safety Report 25597846 (Version 2)
Quarter: 2025Q3

REPORT INFORMATION
  Report Type: Other
  Country: EU (occurrence: EU)
  Receive Date: 20250723
  Receipt Date: 20250730
  Transmission Date: 20251020
  Serious: Yes (Hospitalization)
  Sender: INCYTE
  Company Number: None

PATIENT
  Age: 25 Year
  Weight: 54 kg

DRUGS (1)
  1. OPZELURA [Suspect]
     Active Substance: RUXOLITINIB PHOSPHATE
     Indication: Vitiligo

REACTIONS (3)
  - Head discomfort [Recovered/Resolved]
  - Herpes zoster [Recovered/Resolved]
  - Headache [Recovered/Resolved]
